FAERS Safety Report 5300197-5 (Version None)
Quarter: 2007Q2

REPORT INFORMATION
  Report Type: 
  Country: None (occurrence: None)
  Receive Date: 20070411
  Receipt Date: 20070404
  Transmission Date: 20071010
  Serious: Yes (Death, Life-Threatening)
  Sender: FDA-Public Use
  Company Number: S07-USA-00920-01

PATIENT

DRUGS (1)
  1. INFASURF PRESERVATIVE FREE [Suspect]

REACTIONS (3)
  - ENDOTRACHEAL INTUBATION COMPLICATION [None]
  - HAEMORRHAGE [None]
  - OXYGEN SATURATION DECREASED [None]
